FAERS Safety Report 14112159 (Version 1)
Quarter: 2017Q4

REPORT INFORMATION
  Report Type: Report from Study
  Country: GB (occurrence: GB)
  Receive Date: 20171020
  Receipt Date: 20171020
  Transmission Date: 20180321
  Serious: Yes (Other)
  Sender: FDA-Public Use
  Company Number: GB-UCBSA-2017041389

PATIENT
  Age: 57 Year
  Sex: Male

DRUGS (3)
  1. AMANTADINE. [Concomitant]
     Active Substance: AMANTADINE HYDROCHLORIDE
     Indication: PRODUCT USED FOR UNKNOWN INDICATION
     Dosage: UNK
  2. SELEGILINE [Concomitant]
     Active Substance: SELEGILINE
     Indication: PRODUCT USED FOR UNKNOWN INDICATION
     Dosage: UNK
  3. ROTIGOTINE [Suspect]
     Active Substance: ROTIGOTINE
     Indication: PARKINSON^S DISEASE
     Dosage: UNK

REACTIONS (14)
  - Sleep talking [Unknown]
  - Dysphagia [Unknown]
  - Libido decreased [Unknown]
  - Micturition urgency [Unknown]
  - Choking [Unknown]
  - Middle insomnia [Unknown]
  - Asthenia [Unknown]
  - Somnolence [Unknown]
  - Nightmare [Unknown]
  - Dizziness postural [Unknown]
  - Speech disorder [None]
  - Insomnia [Unknown]
  - Constipation [Unknown]
  - Tremor [None]
